FAERS Safety Report 5764043-8 (Version None)
Quarter: 2008Q2

REPORT INFORMATION
  Report Type: 
  Country: None (occurrence: None)
  Receive Date: 20080602
  Receipt Date: 20080117
  Transmission Date: 20081010
  Serious: No
  Sender: FDA-Public Use
  Company Number: PHEH2007US15877

PATIENT
  Age: 85 Year
  Sex: Female

DRUGS (6)
  1. TEKTURNA [Suspect]
     Indication: HYPERTENSION
     Dates: start: 20071211
  2. QUINAPRIL HCL [Concomitant]
  3. BENICAR [Concomitant]
  4. NORVASC [Concomitant]
  5. TOPROL-XL [Concomitant]
  6. PLAVIX [Concomitant]

REACTIONS (1)
  - DIARRHOEA [None]
